FAERS Safety Report 10162402 (Version 2)
Quarter: 2014Q2

REPORT INFORMATION
  Report Type: Spontaneous
  Country: IE (occurrence: IE)
  Receive Date: 20140509
  Receipt Date: 20140613
  Transmission Date: 20141212
  Serious: Yes (Death, Hospitalization)
  Sender: FDA-Public Use
  Company Number: IE-SA-2014SA056236

PATIENT
  Age: 57 Year
  Sex: Female

DRUGS (6)
  1. TAXOTERE [Suspect]
     Indication: CHEMOTHERAPY
     Route: 042
     Dates: start: 20140320, end: 20140320
  2. TELAPREVIR [Suspect]
     Indication: CHRONIC HEPATITIS C
     Route: 065
  3. HERCEPTIN [Suspect]
     Indication: CHEMOTHERAPY
     Route: 042
     Dates: start: 20140320, end: 20140320
  4. PERJETA [Suspect]
     Indication: CHEMOTHERAPY
     Route: 042
     Dates: start: 20140320, end: 20140320
  5. RIBAVIRIN [Suspect]
     Indication: CHRONIC HEPATITIS C
     Route: 065
  6. PEGINTERFERON ALFA-2A [Suspect]
     Indication: CHRONIC HEPATITIS C
     Route: 065

REACTIONS (3)
  - Pulmonary sepsis [Fatal]
  - Dysarthria [Recovered/Resolved]
  - Periarthritis [Unknown]
